FAERS Safety Report 8214104-9 (Version None)
Quarter: 2012Q1

REPORT INFORMATION
  Report Type: 
  Country: None (occurrence: None)
  Receive Date: 20120316
  Receipt Date: 20120313
  Transmission Date: 20120608
  Serious: Yes (Other)
  Sender: FDA-Public Use
  Company Number: US-PFIZER INC-2010137011

PATIENT
  Sex: Female
  Weight: 46.259 kg

DRUGS (6)
  1. NEURONTIN [Suspect]
     Indication: NERVE INJURY
     Dosage: 100 MG, 3X/DAY
     Route: 048
  2. NEURONTIN [Suspect]
     Indication: BURNING SENSATION
  3. NEURONTIN [Suspect]
     Indication: PAIN
  4. IBANDRONATE SODIUM [Concomitant]
     Indication: OSTEOPOROSIS
     Dosage: 150 MG, MONTHLY
     Route: 048
     Dates: start: 20051001
  5. SYNTHROID [Concomitant]
     Indication: HYPERTHYROIDISM
     Dosage: 300 UG/DAILY
     Route: 048
     Dates: start: 19980101
  6. ACETYLSALICYLIC ACID [Concomitant]
     Dosage: 325 MG, 1X/DAY
     Route: 048
     Dates: start: 19930101

REACTIONS (8)
  - SINUS DISORDER [None]
  - SOMNOLENCE [None]
  - MUSCLE TWITCHING [None]
  - DIZZINESS [None]
  - DEPRESSED MOOD [None]
  - BONE LOSS [None]
  - DYSKINESIA [None]
  - INFLUENZA [None]
